FAERS Safety Report 18600274 (Version 1)
Quarter: 2020Q4

REPORT INFORMATION
  Report Type: Report from Study
  Country: BR (occurrence: BR)
  Receive Date: 20201210
  Receipt Date: 20201210
  Transmission Date: 20210114
  Serious: Yes (Other)
  Sender: FDA-Public Use
  Company Number: NVSC2020BR326651

PATIENT
  Sex: Female

DRUGS (1)
  1. GALVUS MET [Suspect]
     Active Substance: METFORMIN HYDROCHLORIDE\VILDAGLIPTIN
     Indication: PRODUCT USED FOR UNKNOWN INDICATION
     Dosage: 50/500 MG (STARTED A YEAR AGO)
     Route: 065

REACTIONS (3)
  - Cerebrovascular accident [Unknown]
  - Dementia Alzheimer^s type [Unknown]
  - Illness [Unknown]
